FAERS Safety Report 16948405 (Version 1)
Quarter: 2019Q4

REPORT INFORMATION
  Report Type: Report from Study
  Country: None (occurrence: US)
  Receive Date: 20191022
  Receipt Date: 20191022
  Transmission Date: 20200122
  Serious: Yes (Hospitalization)
  Sender: FDA-Public Use
  Company Number: US-ABBVIE-19K-163-2940762-00

PATIENT
  Sex: Female

DRUGS (2)
  1. HUMIRA [Suspect]
     Active Substance: ADALIMUMAB
     Indication: RHEUMATOID ARTHRITIS
     Dosage: CITRATE FREE
     Route: 058
     Dates: end: 2019
  2. HUMIRA [Suspect]
     Active Substance: ADALIMUMAB
     Dosage: CITRATE FREE
     Route: 058
     Dates: start: 2019

REACTIONS (3)
  - Respiratory disorder [Unknown]
  - Chronic obstructive pulmonary disease [Unknown]
  - Bronchitis [Unknown]

NARRATIVE: CASE EVENT DATE: 2019
